FAERS Safety Report 9058411 (Version 1)
Quarter: 2013Q1

REPORT INFORMATION
  Report Type: Spontaneous
  Country: US (occurrence: None)
  Receive Date: 20130205
  Receipt Date: 20130205
  Transmission Date: 20140127
  Serious: Yes (Hospitalization)
  Sender: FDA-Public Use
  Company Number: None

PATIENT
  Age: 64 Year
  Sex: Male
  Weight: 104.78 kg

DRUGS (3)
  1. RIBAPAK [Suspect]
     Indication: HEPATITIS C
     Route: 048
     Dates: start: 20121012
  2. PEGASYS [Concomitant]
  3. VICTRELIS [Concomitant]

REACTIONS (5)
  - Nausea [None]
  - Decreased appetite [None]
  - Fatigue [None]
  - Tremor [None]
  - Pallor [None]
